FAERS Safety Report 20465381 (Version 1)
Quarter: 2022Q1

REPORT INFORMATION
  Report Type: Spontaneous
  Country: US (occurrence: US)
  Receive Date: 20220212
  Receipt Date: 20220212
  Transmission Date: 20220423
  Serious: Yes (Hospitalization, Other)
  Sender: FDA-Public Use
  Company Number: US-CADILA HEALTHCARE LIMITED-US-ZYDUS-069886

PATIENT

DRUGS (7)
  1. SIMVASTATIN [Suspect]
     Active Substance: SIMVASTATIN
     Indication: Pancreatitis
     Dosage: 40 MILLIGRAM, QD
     Route: 048
     Dates: start: 20170202
  2. DIETARY SUPPLEMENT [Concomitant]
     Active Substance: DIETARY SUPPLEMENT
     Indication: Dermatitis
     Dosage: 1 TABLET, QD
     Route: 048
     Dates: start: 20170308
  3. FLUOCINOLONE ACETONIDE ACETATE [Concomitant]
     Indication: Dermatitis
     Dosage: 1 APPLICATION
     Route: 061
     Dates: start: 20110315
  4. TOPICORT [Concomitant]
     Active Substance: DESOXIMETASONE
     Indication: Dermatitis
     Dosage: 1 APPLICATION, BID
     Route: 061
     Dates: start: 20170308
  5. FLONASE [Concomitant]
     Active Substance: FLUTICASONE PROPIONATE
     Indication: Hypersensitivity
     Dosage: 50 MICROGRAM, 2 SPRAYS
     Route: 045
     Dates: start: 20170304
  6. Pediatric Multivitamin Gummy Sw [Concomitant]
     Indication: Product used for unknown indication
     Dosage: 1 TABLET
     Route: 048
     Dates: start: 20161201
  7. PERCOCET [Concomitant]
     Active Substance: ACETAMINOPHEN\OXYCODONE HYDROCHLORIDE
     Indication: Pain
     Dosage: 5-325 MG
     Route: 048
     Dates: start: 20170331

REACTIONS (2)
  - Pancreatitis relapsing [Recovered/Resolved]
  - Product dose omission issue [Recovered/Resolved]

NARRATIVE: CASE EVENT DATE: 20170720
